FAERS Safety Report 12498159 (Version 1)
Quarter: 2016Q2

REPORT INFORMATION
  Report Type: Spontaneous
  Country: US (occurrence: US)
  Receive Date: 20160626
  Receipt Date: 20160626
  Transmission Date: 20160815
  Serious: Yes (Death, Hospitalization, Other)
  Sender: FDA-Public Use
  Company Number: US-AMGEN-USASP2016081525

PATIENT
  Age: 86 Year
  Sex: Female
  Weight: 39.2 kg

DRUGS (1)
  1. PROLIA [Suspect]
     Active Substance: DENOSUMAB
     Indication: PRODUCT USED FOR UNKNOWN INDICATION
     Dosage: UNK
     Route: 065
     Dates: end: 20151208

REACTIONS (3)
  - Diarrhoea [Unknown]
  - Dehydration [Unknown]
  - Death [Fatal]

NARRATIVE: CASE EVENT DATE: 20160517
